FAERS Safety Report 10013387 (Version 4)
Quarter: 2014Q2

REPORT INFORMATION
  Report Type: Report from Study
  Country: FR (occurrence: FR)
  Receive Date: 20140314
  Receipt Date: 20140624
  Transmission Date: 20141212
  Serious: Yes (Hospitalization, Other)
  Sender: FDA-Public Use
  Company Number: FR-CELGENEUS-056-21880-14030421

PATIENT
  Age: 63 Year
  Sex: Male

DRUGS (2)
  1. RITUXIMAB [Suspect]
     Indication: LYMPHOMA
     Route: 065
     Dates: start: 20121030
  2. RITUXIMAB [Suspect]
     Route: 065
     Dates: start: 20140214

REACTIONS (1)
  - Bladder cancer stage I, with cancer in situ [Not Recovered/Not Resolved]
